FAERS Safety Report 8249424-5 (Version None)
Quarter: 2012Q2

REPORT INFORMATION
  Report Type: 
  Country: None (occurrence: None)
  Receive Date: 20120402
  Receipt Date: 20120322
  Transmission Date: 20120825
  Serious: Yes (Death, Life-Threatening, Disabling)
  Sender: FDA-Public Use
  Company Number: JP-GENZYME-THYM-1003060

PATIENT
  Sex: Male
  Weight: 56 kg

DRUGS (39)
  1. ACYCLOVIR [Concomitant]
     Dosage: UNK
     Route: 065
     Dates: start: 20120120, end: 20120129
  2. URSODIOL [Concomitant]
     Indication: PROPHYLAXIS
     Dosage: UNK
     Route: 065
     Dates: start: 20110219, end: 20110429
  3. METHYLPREDNISOLONE SODIUM SUCCINATE [Concomitant]
     Indication: PROPHYLAXIS
     Dosage: UNK
     Route: 065
     Dates: start: 20110219, end: 20110220
  4. METHYLPREDNISOLONE SODIUM SUCCINATE [Concomitant]
     Indication: PROPHYLAXIS AGAINST GRAFT VERSUS HOST DISEASE
     Dosage: UNK
     Route: 065
     Dates: start: 20110221, end: 20110404
  5. PREDNISOLONE [Concomitant]
     Dosage: UNK
     Route: 065
     Dates: start: 20110614, end: 20120130
  6. HYDROCORTISONE SODIUM SUCCINATE [Concomitant]
     Indication: PROPHYLAXIS
     Dosage: UNK
     Route: 065
     Dates: start: 20110221, end: 20110221
  7. GANCICLOVIR [Concomitant]
     Dosage: UNK
     Route: 065
     Dates: start: 20110315, end: 20110525
  8. OMEPRAZOLE [Concomitant]
     Indication: PROPHYLAXIS AGAINST GASTROINTESTINAL ULCER
     Dosage: UNK
     Route: 065
     Dates: start: 20110430, end: 20110615
  9. CEFEPIME HYDROCHLORIDE [Concomitant]
     Indication: ANTIBIOTIC PROPHYLAXIS
     Dosage: UNK
     Route: 065
     Dates: start: 20110217, end: 20110302
  10. MAGNESIUM OXIDE [Concomitant]
     Indication: CONSTIPATION PROPHYLAXIS
     Dosage: UNK
     Route: 065
     Dates: start: 20110304, end: 20110313
  11. MICAFUNGIN SODIUM [Concomitant]
     Indication: ANTIFUNGAL PROPHYLAXIS
     Dosage: UNK
     Route: 065
     Dates: start: 20110421, end: 20110701
  12. OMEPRAZOLE [Concomitant]
     Dosage: UNK
     Route: 065
     Dates: start: 20110810, end: 20120130
  13. VANCOMYCIN HYDROCHLORIDE [Concomitant]
     Indication: ANTIBIOTIC PROPHYLAXIS
     Dosage: UNK
     Route: 065
     Dates: start: 20110519, end: 20110523
  14. RABEPRAZOLE SODIUM [Concomitant]
     Indication: PROPHYLAXIS AGAINST GASTROINTESTINAL ULCER
     Dosage: UNK
     Route: 065
     Dates: start: 20110219, end: 20110429
  15. CYTARABINE [Concomitant]
     Indication: BONE MARROW CONDITIONING REGIMEN
     Dosage: UNK
     Route: 065
     Dates: start: 20110214, end: 20110216
  16. MELPHALAN HYDROCHLORIDE [Concomitant]
     Indication: BONE MARROW CONDITIONING REGIMEN
     Dosage: UNK
     Route: 065
     Dates: start: 20110217, end: 20110218
  17. PREDNISOLONE [Concomitant]
     Indication: PROPHYLAXIS AGAINST GRAFT VERSUS HOST DISEASE
     Dosage: UNK
     Route: 065
     Dates: start: 20110405, end: 20110420
  18. REBAMIPIDE [Concomitant]
     Indication: PROPHYLAXIS AGAINST GASTROINTESTINAL ULCER
     Dosage: UNK
     Route: 065
     Dates: start: 20110606, end: 20110729
  19. VORICONAZOLE [Concomitant]
     Indication: ANTIFUNGAL PROPHYLAXIS
     Dosage: UNK
     Route: 065
     Dates: start: 20110702, end: 20120130
  20. AZULENE SODIUM SULFONATE [Concomitant]
     Indication: PROPHYLAXIS AGAINST GASTROINTESTINAL ULCER
     Dosage: UNK
     Route: 065
     Dates: start: 20110708, end: 20120130
  21. HYDROXYZINE PAMOATE [Concomitant]
     Indication: PROPHYLAXIS
     Dosage: UNK
     Route: 065
     Dates: start: 20110221, end: 20110221
  22. CEFTAZIDIME [Concomitant]
     Indication: ANTIBIOTIC PROPHYLAXIS
     Dosage: UNK
     Route: 065
     Dates: start: 20110303, end: 20110307
  23. TACROLIMUS [Concomitant]
     Indication: PROPHYLAXIS AGAINST GRAFT VERSUS HOST DISEASE
     Dosage: UNK
     Route: 065
     Dates: start: 20110220, end: 20110419
  24. GANCICLOVIR [Concomitant]
     Indication: ANTIVIRAL PROPHYLAXIS
     Dosage: UNK
     Route: 065
     Dates: start: 20110315, end: 20110322
  25. FLUDARABINE PHOSPHATE [Concomitant]
     Indication: BONE MARROW CONDITIONING REGIMEN
     Dosage: UNK
     Route: 065
     Dates: start: 20110214, end: 20110218
  26. IMMUNOGLOBULIN HUMAN NORMAL [Concomitant]
     Indication: INFECTION PROPHYLAXIS
     Dosage: UNK
     Route: 065
     Dates: start: 20120120, end: 20120122
  27. GLYCERIN [Concomitant]
     Indication: PROPHYLAXIS
     Dosage: UNK
     Route: 065
     Dates: start: 20110812, end: 20120130
  28. ACYCLOVIR [Concomitant]
     Indication: ANTIVIRAL PROPHYLAXIS
     Dosage: UNK
     Route: 065
     Dates: start: 20110219, end: 20120130
  29. MICAFUNGIN SODIUM [Concomitant]
     Dosage: UNK
     Route: 065
     Dates: start: 20120121, end: 20120129
  30. MEROPENEM [Concomitant]
     Indication: ANTIBIOTIC PROPHYLAXIS
     Dosage: UNK
     Route: 065
     Dates: start: 20110504, end: 20110527
  31. THYMOGLOBULIN [Suspect]
     Indication: BONE MARROW CONDITIONING REGIMEN
     Dosage: 50 MG, QD
     Route: 042
     Dates: start: 20110219, end: 20110220
  32. FLUCONAZOLE [Concomitant]
     Indication: ANTIFUNGAL PROPHYLAXIS
     Dosage: UNK
     Route: 065
     Dates: start: 20110219, end: 20110429
  33. LANSOPRAZOLE [Concomitant]
     Indication: PROPHYLAXIS AGAINST GASTROINTESTINAL ULCER
     Dosage: UNK
     Route: 065
     Dates: start: 20110604, end: 20120130
  34. CEFEPIME HYDROCHLORIDE [Concomitant]
     Dosage: UNK
     Route: 065
     Dates: start: 20110416, end: 20110429
  35. MEROPENEM [Concomitant]
     Dosage: UNK
     Route: 065
     Dates: start: 20120120, end: 20120127
  36. PHENYTOIN [Concomitant]
     Indication: CONVULSION PROPHYLAXIS
     Dosage: UNK
     Route: 065
     Dates: start: 20120120, end: 20120129
  37. HYDROCORTISONE SODIUM SUCCINATE [Concomitant]
     Dosage: UNK
     Route: 065
     Dates: start: 20120120, end: 20120129
  38. OMEPRAZOLE [Concomitant]
     Dosage: UNK
     Route: 065
     Dates: start: 20120120, end: 20120129
  39. CEFAZOLIN SODIUM [Concomitant]
     Indication: ANTIBIOTIC PROPHYLAXIS
     Dosage: UNK
     Route: 065
     Dates: start: 20110710, end: 20110717

REACTIONS (13)
  - THROMBOTIC MICROANGIOPATHY [None]
  - NEUTROPENIA [None]
  - PULMONARY ALVEOLAR HAEMORRHAGE [None]
  - INSOMNIA [None]
  - STAPHYLOCOCCAL SEPSIS [None]
  - VENTRICULAR TACHYCARDIA [None]
  - RENAL FAILURE [None]
  - INFECTION [None]
  - HYPERTENSION [None]
  - MALABSORPTION [None]
  - PSEUDOMONAL SEPSIS [None]
  - GASTROINTESTINAL HAEMORRHAGE [None]
  - POST TRANSPLANT LYMPHOPROLIFERATIVE DISORDER [None]
